FAERS Safety Report 4293928-7 (Version None)
Quarter: 2004Q1

REPORT INFORMATION
  Report Type: 
  Country: None (occurrence: None)
  Receive Date: 20040212
  Receipt Date: 20040212
  Transmission Date: 20041129
  Serious: No
  Sender: FDA-Public Use
  Company Number: None

PATIENT
  Sex: Female
  Weight: 74.8435 kg

DRUGS (6)
  1. AZITHROMYCIN [Suspect]
     Indication: ASTHMA
     Dosage: 250 MG EVERY 24  H INTRAVENOUS
     Route: 042
     Dates: start: 20031008, end: 20031012
  2. AZITHROMYCIN [Suspect]
     Indication: CHRONIC OBSTRUCTIVE AIRWAYS DISEASE EXACERBATED
     Dosage: 250 MG EVERY 24  H INTRAVENOUS
     Route: 042
     Dates: start: 20031008, end: 20031012
  3. LEVOTHYROXIN [Concomitant]
  4. MONTELEUKAST [Concomitant]
  5. THEO-DUR [Concomitant]
  6. VIOXX [Concomitant]

REACTIONS (2)
  - DIFFICULTY IN WALKING [None]
  - TENDONITIS [None]
